FAERS Safety Report 13164326 (Version 24)
Quarter: 2021Q3

REPORT INFORMATION
  Report Type: Report from Study
  Country: CA (occurrence: CA)
  Receive Date: 20170130
  Receipt Date: 20210929
  Transmission Date: 20211014
  Serious: Yes (Hospitalization, Other)
  Sender: FDA-Public Use
  Company Number: PHHY2014CA101323

PATIENT
  Age: 60 Year
  Sex: Male

DRUGS (13)
  1. SANDOSTATIN [Suspect]
     Active Substance: OCTREOTIDE ACETATE
     Indication: NEUROENDOCRINE TUMOUR
     Dosage: 50 UG, ONCE/SINGLE (TEST DOSE)
     Route: 058
     Dates: start: 20140624, end: 20140624
  2. COVERSYL [Concomitant]
     Active Substance: PERINDOPRIL
     Indication: DIABETES MELLITUS
     Dosage: 100 MG, QD
     Route: 065
     Dates: start: 20161121
  3. AMLODIPINE [Concomitant]
     Active Substance: AMLODIPINE BESYLATE
     Indication: PRODUCT USED FOR UNKNOWN INDICATION
     Dosage: 10 MG, QD
     Route: 065
     Dates: start: 2020, end: 2020
  4. SANDOSTATIN LAR DEPOT [Suspect]
     Active Substance: OCTREOTIDE ACETATE
     Indication: NEUROENDOCRINE TUMOUR
     Dosage: 30 MG, QMO (EVERY 4 WEEKS)
     Route: 030
     Dates: start: 20140714
  5. COVERSYL [Concomitant]
     Active Substance: PERINDOPRIL
     Dosage: UNK
     Route: 065
  6. INVOKANA [Concomitant]
     Active Substance: CANAGLIFLOZIN
     Indication: DIABETES MELLITUS
     Dosage: 100 MG, QD
     Route: 065
     Dates: start: 2016
  7. ROSUVASTATIN. [Concomitant]
     Active Substance: ROSUVASTATIN
     Indication: PRODUCT USED FOR UNKNOWN INDICATION
     Dosage: UNK UNK, QD
     Route: 065
     Dates: end: 2020
  8. SANDOSTATIN LAR DEPOT [Suspect]
     Active Substance: OCTREOTIDE ACETATE
  9. SANDOSTATIN [Suspect]
     Active Substance: OCTREOTIDE ACETATE
  10. GLICLAZIDE [Concomitant]
     Active Substance: GLICLAZIDE
     Indication: PRODUCT USED FOR UNKNOWN INDICATION
     Dosage: 30 MG, QD
     Route: 048
     Dates: start: 2020, end: 2020
  11. SANDOSTATIN [Suspect]
     Active Substance: OCTREOTIDE ACETATE
  12. SANDOSTATIN LAR DEPOT [Suspect]
     Active Substance: OCTREOTIDE ACETATE
  13. GLICLAZIDE [Concomitant]
     Active Substance: GLICLAZIDE
     Dosage: 2 DF, QD
     Route: 048
     Dates: start: 2020

REACTIONS (38)
  - Weight decreased [Unknown]
  - Asthenia [Not Recovered/Not Resolved]
  - Weight increased [Unknown]
  - Abdominal pain [Recovered/Resolved]
  - Hypotension [Not Recovered/Not Resolved]
  - Ascites [Unknown]
  - Abdominal pain upper [Recovered/Resolved]
  - Injection site pain [Unknown]
  - Blood pressure increased [Unknown]
  - Flank pain [Recovered/Resolved]
  - Fatigue [Unknown]
  - Jaundice cholestatic [Unknown]
  - Blood glucose increased [Unknown]
  - Dyspnoea [Unknown]
  - Dehydration [Unknown]
  - Constipation [Recovered/Resolved]
  - Rash [Recovering/Resolving]
  - Abdominal pain [Recovered/Resolved]
  - Acidosis [Unknown]
  - Intestinal mass [Unknown]
  - Blood pressure systolic increased [Unknown]
  - Polyp [Unknown]
  - Feeling abnormal [Unknown]
  - Chills [Recovering/Resolving]
  - Chest pain [Unknown]
  - Investigation abnormal [Unknown]
  - Blood pressure decreased [Unknown]
  - Decreased appetite [Recovering/Resolving]
  - Abdominal pain lower [Recovered/Resolved]
  - General physical health deterioration [Unknown]
  - Renal impairment [Unknown]
  - Renal failure [Unknown]
  - Musculoskeletal chest pain [Recovering/Resolving]
  - Hot flush [Recovering/Resolving]
  - Malaise [Unknown]
  - Lethargy [Unknown]
  - Abdominal pain lower [Recovered/Resolved]
  - Abdominal pain [Recovered/Resolved]

NARRATIVE: CASE EVENT DATE: 2014
